FAERS Safety Report 24556258 (Version 1)
Quarter: 2024Q4

REPORT INFORMATION
  Report Type: Spontaneous
  Country: US (occurrence: US)
  Receive Date: 20241028
  Receipt Date: 20241028
  Transmission Date: 20250115
  Serious: No
  Sender: JOHNSON AND JOHNSON
  Company Number: US-JNJFOC-20241056920

PATIENT
  Sex: Male

DRUGS (1)
  1. RISPERDAL [Suspect]
     Active Substance: RISPERIDONE
     Indication: Self-destructive behaviour
     Dosage: IN VARYING DOSES AND FREQUENCIES OF 1 MG, 2 MG AND 4 MG AND VARYING FREQUENCY ONCE AND THRICE DAILY
     Route: 048
     Dates: start: 201108, end: 20120718

REACTIONS (2)
  - Appetite disorder [Not Recovered/Not Resolved]
  - Off label use [Unknown]
